FAERS Safety Report 20493354 (Version 3)
Quarter: 2022Q2

REPORT INFORMATION
  Report Type: Spontaneous
  Country: US (occurrence: US)
  Receive Date: 20220220
  Receipt Date: 20220406
  Transmission Date: 20220721
  Serious: Yes (Other)
  Sender: FDA-Public Use
  Company Number: US-Blueprint Medicines Corporation-SP-US-2022-000415

PATIENT
  Sex: Female
  Weight: 59.020 kg

DRUGS (3)
  1. AYVAKIT [Suspect]
     Active Substance: AVAPRITINIB
     Indication: Systemic mastocytosis
     Dosage: 25 MG DAILY ALTERNATED WITH 50 MG TABLET EVERY OTHER DAY
     Route: 048
     Dates: start: 20210426
  2. AYVAKIT [Suspect]
     Active Substance: AVAPRITINIB
     Dosage: 25 MG DAILY ALTERNATED WITH 50 MG TABLET EVERY OTHER DAY
     Route: 048
  3. AYVAKIT [Suspect]
     Active Substance: AVAPRITINIB
     Route: 048
     Dates: start: 20210805

REACTIONS (3)
  - Blood iron decreased [Recovering/Resolving]
  - Haemoglobin decreased [Recovering/Resolving]
  - Tooth disorder [Not Recovered/Not Resolved]
